FAERS Safety Report 8606771-2 (Version None)
Quarter: 2012Q3

REPORT INFORMATION
  Report Type: 
  Country: None (occurrence: None)
  Receive Date: 20120820
  Receipt Date: 20120809
  Transmission Date: 20120928
  Serious: Yes (Hospitalization)
  Sender: FDA-Public Use
  Company Number: DE-ASTRAZENECA-2012SE56318

PATIENT
  Age: 11 Year
  Sex: Female
  Weight: 39 kg

DRUGS (2)
  1. FENTANYL [Concomitant]
     Indication: INDUCTION OF ANAESTHESIA
     Route: 040
     Dates: start: 20120302, end: 20120302
  2. PROPOFOL [Suspect]
     Indication: INDUCTION OF ANAESTHESIA
     Route: 040
     Dates: start: 20120302, end: 20120302

REACTIONS (1)
  - VENTRICULAR EXTRASYSTOLES [None]
